FAERS Safety Report 9287020 (Version 1)
Quarter: 2013Q2

REPORT INFORMATION
  Report Type: Spontaneous
  Country: FR (occurrence: FR)
  Receive Date: 20130513
  Receipt Date: 20130513
  Transmission Date: 20140414
  Serious: Yes (Other)
  Sender: FDA-Public Use
  Company Number: FR-B.I. PHARMACEUTICALS,INC./RIDGEFIELD-2013-BI-12956BY

PATIENT
  Age: 78 Year
  Sex: Female
  Weight: 35 kg

DRUGS (12)
  1. TELMISARTAN [Suspect]
     Dosage: 1 ANZ
     Route: 048
     Dates: start: 201112, end: 20130113
  2. ELISOR [Suspect]
     Dosage: 20 MG
     Route: 065
  3. CRESTOR [Suspect]
     Indication: DYSLIPIDAEMIA
     Dosage: 1 ANZ
     Route: 065
     Dates: start: 201104, end: 201105
  4. TAREG [Suspect]
     Indication: HYPERTENSION
     Dosage: 1 ANZ
     Route: 065
     Dates: start: 2008, end: 201110
  5. OLMETEC [Suspect]
     Indication: HYPERTENSION
     Dosage: 40 MG
     Route: 048
     Dates: start: 201110, end: 201112
  6. CORDARONE [Concomitant]
     Dates: start: 2000, end: 2000
  7. VITAMIN B12 BAYER [Concomitant]
     Dates: start: 1990
  8. SOTALEX [Concomitant]
     Dates: start: 2000
  9. FLODIL [Concomitant]
     Dates: start: 1996
  10. KARDEGIC [Concomitant]
     Dates: start: 2000
  11. LEXOMIL [Concomitant]
     Dates: start: 2001
  12. LEVOTHYROX [Concomitant]
     Dates: start: 2000

REACTIONS (2)
  - Diarrhoea [Not Recovered/Not Resolved]
  - Colitis microscopic [Not Recovered/Not Resolved]
